FAERS Safety Report 7587117 (Version 2)
Quarter: 2017Q4

REPORT INFORMATION
  Report Type: Spontaneous
  Country: BE (occurrence: BE)
  Receive Date: 20100915
  Receipt Date: 20171012
  Transmission Date: 20180321
  Serious: Yes (Other)
  Sender: FDA-Public Use
  Company Number: BE-BAYER-201038779GPV

PATIENT
  Age: 36 Year
  Sex: Male

DRUGS (1)
  1. AVELOX [Suspect]
     Active Substance: MOXIFLOXACIN HYDROCHLORIDE
     Indication: EAR INFECTION

REACTIONS (4)
  - Iris hypopigmentation [Recovering/Resolving]
  - Visual impairment [Recovering/Resolving]
  - Uveitis [Recovering/Resolving]
  - Intraocular pressure increased [Recovering/Resolving]
